FAERS Safety Report 7608986-9 (Version None)
Quarter: 2011Q3

REPORT INFORMATION
  Report Type: 
  Country: None (occurrence: None)
  Receive Date: 20110713
  Receipt Date: 20110713
  Transmission Date: 20111222
  Serious: Yes (Hospitalization)
  Sender: FDA-Public Use
  Company Number: None

PATIENT
  Sex: Female
  Weight: 54.4316 kg

DRUGS (2)
  1. PEG-3350 [Suspect]
     Indication: CONSTIPATION
     Dosage: 7 TO 10 OUNCES EVER 10 MINUTES DRINK AS MUCH AS YOU CAN +  JUST FINISH
     Dates: start: 20110605
  2. PEG-3350 [Suspect]
     Indication: CONSTIPATION
     Dosage: 7 TO 10 OUNCES EVER 10 MINUTES DRINK AS MUCH AS YOU CAN +  JUST FINISH
     Dates: start: 20110611

REACTIONS (1)
  - DRUG INEFFECTIVE [None]
